FAERS Safety Report 18700275 (Version 1)
Quarter: 2021Q1

REPORT INFORMATION
  Report Type: Spontaneous
  Country: US (occurrence: US)
  Receive Date: 20210105
  Receipt Date: 20210105
  Transmission Date: 20210419
  Serious: No
  Sender: FDA-Public Use
  Company Number: US-SA-2018SA089431

PATIENT

DRUGS (1)
  1. FABRAZYME [Suspect]
     Active Substance: AGALSIDASE BETA
     Indication: FABRY^S DISEASE
     Dosage: 50 MG,QOW
     Route: 041
     Dates: start: 20180123

REACTIONS (2)
  - Product dose omission issue [Unknown]
  - Tooth infection [Unknown]

NARRATIVE: CASE EVENT DATE: 20180319
